FAERS Safety Report 4329473-X (Version None)
Quarter: 2004Q2

REPORT INFORMATION
  Report Type: 
  Country: None (occurrence: None)
  Receive Date: 20040401
  Receipt Date: 20040326
  Transmission Date: 20050107
  Serious: Yes (Life-Threatening, Hospitalization)
  Sender: FDA-Public Use
  Company Number: US-MERCK-0403USA02453

PATIENT
  Age: 65 Year
  Sex: Female

DRUGS (2)
  1. FOSAMAX [Suspect]
     Route: 048
     Dates: end: 20040317
  2. SYNTHROID [Concomitant]
     Route: 065

REACTIONS (6)
  - GASTROINTESTINAL HAEMORRHAGE [None]
  - HAEMATOCRIT DECREASED [None]
  - HAEMOGLOBIN DECREASED [None]
  - HEART RATE INCREASED [None]
  - OESOPHAGITIS [None]
  - RED BLOOD CELL COUNT DECREASED [None]
